FAERS Safety Report 4831778-0 (Version None)
Quarter: 2005Q4

REPORT INFORMATION
  Report Type: 
  Country: None (occurrence: None)
  Receive Date: 20051118
  Receipt Date: 20050726
  Transmission Date: 20060501
  Serious: Yes (Hospitalization)
  Sender: FDA-Public Use
  Company Number: US-MERCK-0507USA04198

PATIENT
  Age: 64 Year
  Sex: Male
  Weight: 95 kg

DRUGS (7)
  1. VIOXX [Suspect]
     Indication: ARTHRITIS
     Route: 048
     Dates: start: 20000501, end: 20040801
  2. VIOXX [Suspect]
     Route: 048
     Dates: start: 20000501, end: 20040801
  3. GLYBURIDE [Concomitant]
     Route: 065
  4. GLUCOPHAGE [Concomitant]
     Route: 065
  5. ASPIRIN [Concomitant]
     Route: 065
  6. ZESTRIL [Concomitant]
     Indication: HYPERTENSION
     Route: 065
     Dates: start: 19990101
  7. PLAVIX [Concomitant]
     Route: 065
     Dates: start: 20040601

REACTIONS (6)
  - CAROTID ARTERY DISEASE [None]
  - CAROTID ARTERY STENOSIS [None]
  - CEREBROVASCULAR ACCIDENT [None]
  - OEDEMA PERIPHERAL [None]
  - PARALYSIS [None]
  - TRANSIENT ISCHAEMIC ATTACK [None]
